FAERS Safety Report 5763880-3 (Version None)
Quarter: 2008Q2

REPORT INFORMATION
  Report Type: 
  Country: None (occurrence: None)
  Receive Date: 20080606
  Receipt Date: 20080606
  Transmission Date: 20081010
  Serious: Yes (Other)
  Sender: FDA-Public Use
  Company Number: None

PATIENT
  Age: 55 Year
  Sex: Male
  Weight: 136 kg

DRUGS (1)
  1. ARGATROBAN [Suspect]
     Dosage: 250 MCG/250 ML  3ML/HR  IV DRIP
     Route: 041
     Dates: start: 20080321, end: 20080322

REACTIONS (1)
  - HAEMORRHAGE [None]
